FAERS Safety Report 8267232-6 (Version None)
Quarter: 2012Q2

REPORT INFORMATION
  Report Type: 
  Country: None (occurrence: None)
  Receive Date: 20120409
  Receipt Date: 20120404
  Transmission Date: 20120825
  Serious: Yes (Death)
  Sender: FDA-Public Use
  Company Number: NL-PFIZER INC-2012077056

PATIENT
  Age: 75 Year
  Sex: Male
  Weight: 91 kg

DRUGS (16)
  1. CORTISONE ACETATE [Concomitant]
     Indication: BLOOD CORTICOTROPHIN ABNORMAL
     Dosage: UNK
     Dates: start: 19810201
  2. SOMATROPIN [Suspect]
     Indication: GROWTH HORMONE DEFICIENCY
     Dosage: 0.1 MG, 1X/DAY
     Dates: start: 19960926, end: 20081210
  3. LEVOTHYROXINE [Concomitant]
     Indication: BLOOD THYROID STIMULATING HORMONE DECREASED
     Dosage: UNK
     Dates: start: 19850101
  4. ANDRIOL [Concomitant]
     Indication: BLOOD LUTEINISING HORMONE ABNORMAL
     Dosage: UNK
     Dates: start: 19810201
  5. ANDRIOL [Concomitant]
     Indication: BLOOD FOLLICLE STIMULATING HORMONE ABNORMAL
  6. ASCAL [Concomitant]
     Indication: ISCHAEMIA
     Dosage: UNK
     Dates: start: 19920615
  7. SIMVASTATIN [Concomitant]
     Indication: HYPERCHOLESTEROLAEMIA
     Dosage: UNK
     Dates: start: 20030201
  8. ANDRIOL [Concomitant]
     Indication: HYPOGONADISM
  9. TESTOSTERONE [Concomitant]
     Indication: BLOOD FOLLICLE STIMULATING HORMONE ABNORMAL
  10. OXYBUTYNIN [Concomitant]
     Indication: BLADDER PAIN
     Dosage: UNK
     Dates: start: 20030201
  11. PARLODEL [Concomitant]
     Indication: GALACTOSAEMIA
     Dosage: UNK
     Dates: start: 19810215
  12. OMEPRAZOLE [Concomitant]
     Dosage: UNK
     Dates: start: 20030201
  13. TESTOSTERONE [Concomitant]
     Indication: HYPOGONADISM
  14. LEVOTHYROXINE [Concomitant]
     Indication: PRIMARY HYPOTHYROIDISM
  15. PROSCAR [Concomitant]
     Indication: BENIGN PROSTATIC HYPERPLASIA
     Dosage: UNK
     Dates: start: 20010801
  16. TESTOSTERONE [Concomitant]
     Indication: BLOOD LUTEINISING HORMONE ABNORMAL
     Dosage: UNK
     Dates: start: 20030819

REACTIONS (1)
  - DEATH [None]
